FAERS Safety Report 17857853 (Version 2)
Quarter: 2020Q4

REPORT INFORMATION
  Report Type: Spontaneous
  Country: US (occurrence: US)
  Receive Date: 20200604
  Receipt Date: 20201002
  Transmission Date: 20210113
  Serious: Yes (Other)
  Sender: FDA-Public Use
  Company Number: US-009507513-2005USA009639

PATIENT
  Sex: Female
  Weight: 69.84 kg

DRUGS (12)
  1. SUMATRIPTAN. [Concomitant]
     Active Substance: SUMATRIPTAN
     Indication: MIGRAINE
     Dosage: 1 SPRAY IN EACH NOSTRIL AS NEEDED
  2. NEXPLANON [Suspect]
     Active Substance: ETONOGESTREL
     Indication: CONTRACEPTION
     Dosage: 1 IMPLANT (68MG), ONCE
     Route: 059
     Dates: end: 20200508
  3. KLONOPIN [Concomitant]
     Active Substance: CLONAZEPAM
     Dosage: 1 MILLIGRAM, DAILY
  4. IBUPROFEN. [Concomitant]
     Active Substance: IBUPROFEN
     Dosage: 800 MILLIGRAM, THREE TIMES DAILY AS NEEDED
  5. SEROQUEL [Concomitant]
     Active Substance: QUETIAPINE FUMARATE
     Dosage: 50 MILLIGRAM, ONCE DAILY
  6. VALACYCLOVIR HYDROCHLORIDE. [Concomitant]
     Active Substance: VALACYCLOVIR HYDROCHLORIDE
     Dosage: 500 MILLIGRAM, DAILY
  7. CAMILA [Concomitant]
     Active Substance: NORETHINDRONE
     Dosage: 0.35 MICROGRAM
  8. TRAMADOL HYDROCHLORIDE. [Concomitant]
     Active Substance: TRAMADOL HYDROCHLORIDE
     Dosage: 50 MILLIGRAM, DAILY
  9. LIDOCAINE. [Concomitant]
     Active Substance: LIDOCAINE
     Dosage: 1.8 PERCENT PATCH ONCE DAILY
  10. LITHIUM CARBONATE. [Concomitant]
     Active Substance: LITHIUM CARBONATE
     Dosage: 300 MILLIGRAM, THREE TIMES A DAY
  11. VOLTAREN [Concomitant]
     Active Substance: DICLOFENAC SODIUM
     Dosage: AS NEEDED
  12. TOPAMAX [Concomitant]
     Active Substance: TOPIRAMATE
     Dosage: 10 MILLIGRAM, TWICE DAILY

REACTIONS (2)
  - Bipolar disorder [Recovering/Resolving]
  - Bacterial vaginosis [Unknown]
